FAERS Safety Report 14864960 (Version 1)
Quarter: 2018Q2

REPORT INFORMATION
  Report Type: Spontaneous
  Country: US (occurrence: US)
  Receive Date: 20180508
  Receipt Date: 20180508
  Transmission Date: 20180711
  Serious: No
  Sender: FDA-Public Use
  Company Number: US-ALKERMES INC.-ALK-2017-004164

PATIENT
  Age: 29 Year
  Sex: Male
  Weight: 92.97 kg

DRUGS (5)
  1. VITAMIN C [Concomitant]
     Active Substance: ASCORBIC ACID
     Indication: PRODUCT USED FOR UNKNOWN INDICATION
  2. ECHINACEA [Concomitant]
     Active Substance: ECHINACEA, UNSPECIFIED
     Indication: PRODUCT USED FOR UNKNOWN INDICATION
  3. VITAMINS [Concomitant]
     Active Substance: VITAMINS
     Indication: PRODUCT USED FOR UNKNOWN INDICATION
  4. VIVITROL [Suspect]
     Active Substance: NALTREXONE
     Indication: ALCOHOLISM
     Dosage: 380 MG, QMO
     Route: 030
     Dates: start: 20171003
  5. NIACIN. [Concomitant]
     Active Substance: NIACIN
     Indication: PRODUCT USED FOR UNKNOWN INDICATION

REACTIONS (15)
  - Suicidal ideation [Unknown]
  - Panic attack [Recovered/Resolved]
  - Ear discomfort [Recovered/Resolved]
  - Crying [Recovered/Resolved]
  - Fatigue [Recovered/Resolved]
  - Irritability [Not Recovered/Not Resolved]
  - Anxiety [Unknown]
  - Emotional poverty [Not Recovered/Not Resolved]
  - Depression [Not Recovered/Not Resolved]
  - Nausea [Recovered/Resolved]
  - Tinnitus [Recovered/Resolved]
  - Insomnia [Recovered/Resolved]
  - Anger [Not Recovered/Not Resolved]
  - Abnormal dreams [Recovered/Resolved]
  - Malaise [Recovered/Resolved]

NARRATIVE: CASE EVENT DATE: 201710
